FAERS Safety Report 5170661-0 (Version None)
Quarter: 2006Q4

REPORT INFORMATION
  Report Type: 
  Country: None (occurrence: None)
  Receive Date: 20061205
  Receipt Date: 20061121
  Transmission Date: 20070319
  Serious: No
  Sender: FDA-Public Use
  Company Number: 06H-028-0311273-00

PATIENT
  Age: 31 Year
  Sex: Female

DRUGS (15)
  1. MAGNESIUM SULFATE [Suspect]
     Indication: CONVULSION
     Dosage: 2 GM, TWICE
  2. PHENYTOIN [Suspect]
     Indication: CONVULSION
     Dosage: 1 GM
  3. PROPOFOL [Suspect]
     Indication: CONVULSION
     Dosage: SEE IMAGE
  4. PENTOTHAL [Suspect]
     Indication: CONVULSION
     Dosage: SEE IMAGE
     Route: 042
  5. PENTOTHAL [Suspect]
     Indication: INDUCTION OF ANAESTHESIA
     Dosage: SEE IMAGE
     Route: 042
  6. MIDAZOLAM HCL [Suspect]
     Indication: CONVULSION
     Dosage: 3 MG
  7. DIAZEPAM [Suspect]
     Indication: CONVULSION
     Dosage: SEE IMAGE
  8. LORAZEPAM [Suspect]
     Dosage: 2 MG
  9. SODIUM CITRATE [Concomitant]
  10. METOCLOPRAMIDE [Concomitant]
  11. SUCCINYLCHOLINE CHLORIDE [Concomitant]
  12. 100% OXYGEN (OXYGEN) [Concomitant]
  13. CALCIUM CHLORIDE (CALCIUM CHLORIDE HEXAHYDRATE) [Concomitant]
  14. 40% OXYGEN(OXYGEN) [Concomitant]
  15. 50% DEXTROSE (GLUCOSE INJECTION) [Concomitant]

REACTIONS (9)
  - COMA [None]
  - ELECTROENCEPHALOGRAM ABNORMAL [None]
  - ENCEPHALOPATHY [None]
  - HYPOTENSION [None]
  - INTRA-UTERINE DEATH [None]
  - ISCHAEMIA [None]
  - MULTI-ORGAN FAILURE [None]
  - PRESCRIBED OVERDOSE [None]
  - RENAL IMPAIRMENT [None]
